FAERS Safety Report 10633752 (Version 1)
Quarter: 2014Q4

REPORT INFORMATION
  Report Type: Report from Study
  Country: CA (occurrence: CA)
  Receive Date: 20141205
  Receipt Date: 20141205
  Transmission Date: 20150529
  Serious: Yes (Other)
  Sender: FDA-Public Use
  Company Number: CA-JNJFOC-20141118413

PATIENT
  Age: 72 Year
  Sex: Female
  Weight: 59.5 kg

DRUGS (1)
  1. REMICADE [Suspect]
     Active Substance: INFLIXIMAB
     Indication: RHEUMATOID ARTHRITIS
     Route: 042
     Dates: start: 20040212, end: 20140807

REACTIONS (1)
  - Bronchial carcinoma [Unknown]

NARRATIVE: CASE EVENT DATE: 20141103
